FAERS Safety Report 9298514 (Version 3)
Quarter: 2014Q2

REPORT INFORMATION
  Report Type: Report from Study
  Country: CA (occurrence: CA)
  Receive Date: 20130520
  Receipt Date: 20140526
  Transmission Date: 20141212
  Serious: No
  Sender: FDA-Public Use
  Company Number: CA-ROCHE-1225007

PATIENT
  Age: 66 Year
  Sex: Male
  Weight: 100 kg

DRUGS (18)
  1. RITUXAN [Suspect]
     Indication: RHEUMATOID ARTHRITIS
     Dosage: LATEST DOSE OF RITUXIMAB RECIEVED 13/MAY/2013
     Route: 042
     Dates: start: 20120607
  2. RITUXAN [Suspect]
     Route: 042
     Dates: start: 20131010
  3. DIPHENHYDRAMINE HCL [Concomitant]
     Indication: PREMEDICATION
     Route: 048
     Dates: start: 20120607
  4. METHYLPREDNISOLONE [Concomitant]
     Indication: PREMEDICATION
     Route: 042
     Dates: start: 20120607
  5. ACETAMINOPHEN [Concomitant]
     Indication: PREMEDICATION
     Route: 048
     Dates: start: 20130513
  6. ACETAMINOPHEN [Concomitant]
     Route: 048
     Dates: start: 20130528
  7. ACETAMINOPHEN [Concomitant]
     Route: 048
     Dates: start: 20130926
  8. ACETAMINOPHEN [Concomitant]
     Route: 048
     Dates: start: 20131010
  9. CELEBREX [Concomitant]
  10. FOLIC ACID [Concomitant]
  11. METHOTREXATE [Concomitant]
  12. PLAQUENIL [Concomitant]
  13. NEXIUM [Concomitant]
  14. AVALIDE [Concomitant]
  15. ATIVAN [Concomitant]
  16. METFORMIN [Concomitant]
  17. QUININE [Concomitant]
  18. EFUDEX [Concomitant]
     Route: 065

REACTIONS (1)
  - Heart rate increased [Not Recovered/Not Resolved]
